FAERS Safety Report 16773013 (Version 1)
Quarter: 2019Q3

REPORT INFORMATION
  Report Type: Spontaneous
  Country: FR (occurrence: FR)
  Receive Date: 20190904
  Receipt Date: 20190904
  Transmission Date: 20191005
  Serious: Yes (Other)
  Sender: FDA-Public Use
  Company Number: FR-ANIPHARMA-2019-FR-000195

PATIENT
  Age: 76 Year
  Sex: Male

DRUGS (5)
  1. LEVOTHYROX [Suspect]
     Active Substance: LEVOTHYROXINE
     Dosage: 20 UG QD
     Route: 048
  2. INEGY [Suspect]
     Active Substance: EZETIMIBE\SIMVASTATIN
     Dosage: 10/20 MILLIGRAM, QD
     Route: 048
  3. FLECAINE [Suspect]
     Active Substance: FLECAINIDE
     Dosage: 200 MG QD
     Route: 048
     Dates: start: 2016
  4. CANDESARTAN. [Suspect]
     Active Substance: CANDESARTAN
     Indication: PRODUCT USED FOR UNKNOWN INDICATION
     Dosage: 4 MG QD
     Route: 048
  5. ZYLORIC [Suspect]
     Active Substance: ALLOPURINOL
     Dosage: 300 MG QD
     Route: 048

REACTIONS (1)
  - Exercise tolerance decreased [Unknown]

NARRATIVE: CASE EVENT DATE: 20190301
